FAERS Safety Report 20842895 (Version 3)
Quarter: 2022Q3

REPORT INFORMATION
  Report Type: Spontaneous
  Country: FR (occurrence: FR)
  Receive Date: 20220518
  Receipt Date: 20220928
  Transmission Date: 20221027
  Serious: Yes (Death, Other)
  Sender: FDA-Public Use
  Company Number: FR-NOVARTISPH-NVSC2022FR113634

PATIENT
  Age: 22 Year
  Sex: Female

DRUGS (2)
  1. TRILEPTAL [Suspect]
     Active Substance: OXCARBAZEPINE
     Indication: Product used for unknown indication
     Dosage: 600 MG
     Route: 065
     Dates: start: 2011, end: 2016
  2. LAMICTAL [Suspect]
     Active Substance: LAMOTRIGINE
     Indication: Product used for unknown indication
     Dosage: UNK
     Route: 065
     Dates: start: 2016

REACTIONS (6)
  - Epilepsy [Fatal]
  - Drug therapeutic incompatibility [Fatal]
  - Tonsillitis [Fatal]
  - Laryngeal oedema [Fatal]
  - Pancreatic neuroendocrine tumour [Fatal]
  - Asphyxia [Fatal]
